FAERS Safety Report 8140567-3 (Version None)
Quarter: 2012Q1

REPORT INFORMATION
  Report Type: 
  Country: None (occurrence: None)
  Receive Date: 20120216
  Receipt Date: 20120215
  Transmission Date: 20120608
  Serious: Yes (Other)
  Sender: FDA-Public Use
  Company Number: CH-PFIZER INC-2012036599

PATIENT
  Age: 36 Year
  Sex: Female
  Weight: 92 kg

DRUGS (1)
  1. VARENICLINE TARTRATE [Suspect]
     Indication: SMOKING CESSATION THERAPY
     Dosage: 0.5 MG, 1X/DAY
     Route: 048
     Dates: start: 20120101, end: 20120120

REACTIONS (5)
  - HYPERSENSITIVITY [None]
  - AGITATION [None]
  - HEART RATE ABNORMAL [None]
  - WEIGHT DECREASED [None]
  - LIP SWELLING [None]
